FAERS Safety Report 9029040 (Version 1)
Quarter: 2013Q1

REPORT INFORMATION
  Report Type: Spontaneous
  Country: US (occurrence: US)
  Receive Date: 20130122
  Receipt Date: 20130122
  Transmission Date: 20140127
  Serious: Yes (Death, Other)
  Sender: FDA-Public Use
  Company Number: US-OTSUKA-US-2013-10062

PATIENT
  Age: 47 Year
  Sex: Female

DRUGS (2)
  1. BUSULFEX [Suspect]
  2. ETOPOSIDE [Suspect]

REACTIONS (4)
  - Multi-organ failure [Fatal]
  - Infection [Fatal]
  - Chronic graft versus host disease [Unknown]
  - Toxicity to various agents [None]
